FAERS Safety Report 24589151 (Version 2)
Quarter: 2024Q4

REPORT INFORMATION
  Report Type: Spontaneous
  Country: US (occurrence: US)
  Receive Date: 20241107
  Receipt Date: 20241122
  Transmission Date: 20250115
  Serious: Yes (Life-Threatening, Hospitalization, Other)
  Sender: TEVA
  Company Number: US-TEVA-VS-3260320

PATIENT
  Sex: Female

DRUGS (11)
  1. DOCETAXEL [Suspect]
     Active Substance: DOCETAXEL
     Indication: Leiomyosarcoma metastatic
     Route: 065
  2. MILRINONE [Concomitant]
     Active Substance: MILRINONE
     Indication: Chronic left ventricular failure
     Route: 065
  3. GEMCITABINE [Suspect]
     Active Substance: GEMCITABINE
     Indication: Leiomyosarcoma metastatic
     Route: 065
  4. PAZOPANIB [Suspect]
     Active Substance: PAZOPANIB
     Indication: Leiomyosarcoma metastatic
     Route: 065
  5. ATORVASTATIN [Concomitant]
     Active Substance: ATORVASTATIN
     Indication: Acute myocardial infarction
     Route: 065
  6. APIXABAN [Concomitant]
     Active Substance: APIXABAN
     Indication: Atrial fibrillation
     Route: 065
  7. DOXORUBICIN [Suspect]
     Active Substance: DOXORUBICIN
     Indication: Leiomyosarcoma metastatic
     Route: 065
  8. AMIODARONE [Concomitant]
     Active Substance: AMIODARONE
     Indication: Atrial fibrillation
     Route: 065
  9. ASPIRIN [Concomitant]
     Active Substance: ASPIRIN
     Indication: Acute myocardial infarction
     Route: 065
  10. TORSEMIDE [Suspect]
     Active Substance: TORSEMIDE
     Indication: Chronic left ventricular failure
     Route: 065
  11. SPIRONOLACTONE [Suspect]
     Active Substance: SPIRONOLACTONE
     Indication: Chronic left ventricular failure
     Route: 065

REACTIONS (7)
  - Cardiomyopathy [Recovering/Resolving]
  - Rebound effect [Unknown]
  - Drug ineffective [Unknown]
  - Acute coronary syndrome [Recovering/Resolving]
  - Chronic left ventricular failure [Recovering/Resolving]
  - Acute myocardial infarction [Recovering/Resolving]
  - Atrial fibrillation [Recovering/Resolving]
